FAERS Safety Report 22592786 (Version 1)
Quarter: 2023Q2

REPORT INFORMATION
  Report Type: Report from Study
  Country: US (occurrence: US)
  Receive Date: 20230613
  Receipt Date: 20230613
  Transmission Date: 20230721
  Serious: Yes (Other)
  Sender: FDA-Public Use
  Company Number: US-002147023-NVSC2023US129912

PATIENT
  Sex: Female

DRUGS (2)
  1. COSENTYX [Suspect]
     Active Substance: SECUKINUMAB
     Indication: Psoriasis
     Dosage: UNK
     Route: 065
  2. TRIAMCINOLONE [Suspect]
     Active Substance: TRIAMCINOLONE
     Indication: Psoriasis
     Dosage: UNK
     Route: 061

REACTIONS (13)
  - Psoriatic arthropathy [Unknown]
  - Arthralgia [Recovering/Resolving]
  - Musculoskeletal stiffness [Not Recovered/Not Resolved]
  - Osteoarthritis [Unknown]
  - Dermatitis psoriasiform [Unknown]
  - Pustule [Unknown]
  - Parakeratosis [Unknown]
  - Lymphocytic infiltration [Unknown]
  - Psoriasis [Unknown]
  - Hyperkeratosis [Unknown]
  - Skin plaque [Unknown]
  - Skin exfoliation [Unknown]
  - Therapeutic product effect incomplete [Unknown]
